FAERS Safety Report 10420926 (Version 1)
Quarter: 2014Q3

REPORT INFORMATION
  Report Type: Spontaneous
  Country: US (occurrence: None)
  Receive Date: 20140829
  Receipt Date: 20140829
  Transmission Date: 20150326
  Serious: Yes (Hospitalization)
  Sender: FDA-Public Use
  Company Number: None

PATIENT
  Age: 67 Year
  Sex: Male
  Weight: 108.5 kg

DRUGS (1)
  1. WARFARIN [Suspect]
     Active Substance: WARFARIN
     Dosage: MG PO
     Route: 048
     Dates: start: 20020101

REACTIONS (10)
  - Nausea [None]
  - Melaena [None]
  - Haematuria [None]
  - International normalised ratio increased [None]
  - Medication error [None]
  - Vomiting [None]
  - Gingival bleeding [None]
  - Diarrhoea [None]
  - Mouth haemorrhage [None]
  - Haemarthrosis [None]

NARRATIVE: CASE EVENT DATE: 20140526
